FAERS Safety Report 9037715 (Version 1)
Quarter: 2013Q1

REPORT INFORMATION
  Report Type: Report from Study
  Country: US (occurrence: US)
  Receive Date: 20130129
  Receipt Date: 20130129
  Transmission Date: 20140127
  Serious: No
  Sender: FDA-Public Use
  Company Number: US-ABBOTT-12P-163-0893708-00

PATIENT
  Sex: Female
  Weight: 84.9 kg

DRUGS (8)
  1. HUMIRA 40 MG/0.8 ML PEN [Suspect]
     Indication: RHEUMATOID ARTHRITIS
     Route: 058
     Dates: start: 201109, end: 201111
  2. PREDNISONE [Concomitant]
     Indication: PRODUCT USED FOR UNKNOWN INDICATION
  3. SINEMET [Concomitant]
     Indication: PARKINSON^S DISEASE
  4. ALDOPRIL [Concomitant]
     Indication: PARKINSON^S DISEASE
  5. NEOPEX [Concomitant]
     Indication: PARKINSON^S DISEASE
  6. SINGULAR [Concomitant]
     Indication: ASTHMA
  7. ADVIR [Concomitant]
     Indication: ASTHMA
  8. FOLIC ACID [Concomitant]
     Indication: PRODUCT USED FOR UNKNOWN INDICATION

REACTIONS (1)
  - Pneumonia [Recovered/Resolved]
